FAERS Safety Report 19450519 (Version 1)
Quarter: 2021Q2

REPORT INFORMATION
  Report Type: Spontaneous
  Country: US (occurrence: US)
  Receive Date: 20210622
  Receipt Date: 20210622
  Transmission Date: 20210717
  Serious: Yes (Other)
  Sender: FDA-Public Use
  Company Number: US-ASTRAZENECA-2021A548412

PATIENT
  Age: 70 Year
  Sex: Female
  Weight: 81.6 kg

DRUGS (13)
  1. SUPREP BOWEL PREP [Suspect]
     Active Substance: MAGNESIUM SULFATE\POTASSIUM SULFATE\SODIUM SULFATE
     Indication: COLONOSCOPY
     Dates: start: 201810
  2. LAMICTAL [Suspect]
     Active Substance: LAMOTRIGINE
     Indication: SEIZURE
     Dosage: 100 MG, 1X/DAY AT NIGHT
     Route: 065
  3. MAGNESIUM [Concomitant]
     Active Substance: MAGNESIUM
  4. OMEPRAZOLE. [Suspect]
     Active Substance: OMEPRAZOLE
     Indication: GASTROOESOPHAGEAL REFLUX DISEASE
     Dosage: UNK
     Route: 048
     Dates: start: 2021, end: 2021
  5. DOCUSATE SODIUM. [Concomitant]
     Active Substance: DOCUSATE SODIUM
  6. UNSPECIFIED ANTIBIOTICS [Suspect]
     Active Substance: UNSPECIFIED INGREDIENT
     Indication: TOOTH DISORDER
  7. FAMOTIDINE. [Concomitant]
     Active Substance: FAMOTIDINE
     Dosage: TABLET, 20 MG
  8. LAMICTAL [Suspect]
     Active Substance: LAMOTRIGINE
     Indication: SEIZURE
     Dosage: 125 MG, 1X/DAY MORNING
     Route: 065
  9. VITAMIN D3 [Concomitant]
     Active Substance: CHOLECALCIFEROL
  10. LEVETIRACETAM. [Concomitant]
     Active Substance: LEVETIRACETAM
  11. VITAMIN B6 [Concomitant]
     Active Substance: PYRIDOXINE HYDROCHLORIDE
  12. COVID VACCINE [Concomitant]
  13. LAMOTRIGINE. [Suspect]
     Active Substance: LAMOTRIGINE
     Indication: SEIZURE
     Dosage: 2 X 6 OZ. BOTTLE, 1X
     Dates: start: 201810, end: 201810

REACTIONS (14)
  - Gastrooesophageal reflux disease [Not Recovered/Not Resolved]
  - Cough [Not Recovered/Not Resolved]
  - Seizure [Unknown]
  - Urinary retention [Unknown]
  - Constipation [Not Recovered/Not Resolved]
  - Weight decreased [Recovered/Resolved]
  - Asthenia [Unknown]
  - Decreased interest [Unknown]
  - Tooth disorder [Unknown]
  - Dyspepsia [Not Recovered/Not Resolved]
  - Clostridium difficile infection [Unknown]
  - Rectal haemorrhage [Not Recovered/Not Resolved]
  - Eosinophilic oesophagitis [Unknown]
  - Hypophagia [Unknown]

NARRATIVE: CASE EVENT DATE: 202005
